FAERS Safety Report 25719845 (Version 1)
Quarter: 2025Q3

REPORT INFORMATION
  Report Type: Spontaneous
  Country: US (occurrence: US)
  Receive Date: 20250825
  Receipt Date: 20250825
  Transmission Date: 20251021
  Serious: Yes (Other)
  Sender: UCB
  Company Number: US-UCBSA-2025051725

PATIENT
  Sex: Male

DRUGS (1)
  1. KEPPRA [Suspect]
     Active Substance: LEVETIRACETAM
     Indication: Product used for unknown indication
     Dosage: UNK
     Dates: end: 2023

REACTIONS (7)
  - Seizure [Not Recovered/Not Resolved]
  - Suicidal ideation [Unknown]
  - Diplopia [Not Recovered/Not Resolved]
  - Gastrointestinal disorder [Unknown]
  - Anxiety [Unknown]
  - Anger [Unknown]
  - Inappropriate schedule of product administration [Unknown]
